FAERS Safety Report 4281069-4 (Version None)
Quarter: 2004Q1

REPORT INFORMATION
  Report Type: 
  Country: None (occurrence: None)
  Receive Date: 20040123
  Receipt Date: 20030224
  Transmission Date: 20041129
  Serious: Yes (Other)
  Sender: FDA-Public Use
  Company Number: HQWYE805403AR03

PATIENT
  Age: 75 Year
  Sex: Male
  Weight: 68.1 kg

DRUGS (2)
  1. CORDARONE [Suspect]
     Indication: ARRHYTHMIA
     Dosage: SEE IMAGE
     Route: 048
     Dates: start: 20010201
  2. COUMADIN [Concomitant]

REACTIONS (1)
  - OPTIC NEUROPATHY [None]
